FAERS Safety Report 21051684 (Version 2)
Quarter: 2024Q2

REPORT INFORMATION
  Report Type: Spontaneous
  Country: US (occurrence: US)
  Receive Date: 20220707
  Receipt Date: 20240603
  Transmission Date: 20240716
  Serious: Yes (Other)
  Sender: FDA-Public Use
  Company Number: US-MYLANLABS-2022M1050568

PATIENT
  Age: 67 Year
  Sex: Male
  Weight: 107.95 kg

DRUGS (6)
  1. VALSARTAN [Suspect]
     Active Substance: VALSARTAN
     Indication: Hypertension
     Dosage: 160 MILLIGRAM
     Route: 065
     Dates: start: 20150306, end: 20171127
  2. VALSARTAN [Suspect]
     Active Substance: VALSARTAN
     Indication: Hypertension
     Dosage: 320 MILLIGRAM
     Route: 065
     Dates: start: 20171127, end: 20181213
  3. VALSARTAN [Suspect]
     Active Substance: VALSARTAN
     Indication: Hypertension
     Dosage: UNK
     Route: 065
  4. HYDROCODONE BITARTRATE AND ACETAMINOPHEN [Concomitant]
     Active Substance: ACETAMINOPHEN\HYDROCODONE BITARTRATE
     Dosage: UNK (10-325 MG)
     Route: 065
  5. DIOVAN [Concomitant]
     Active Substance: VALSARTAN
     Dosage: 360 MILLIGRAM, QD
     Route: 065
  6. REGLAN [Concomitant]
     Active Substance: METOCLOPRAMIDE HYDROCHLORIDE
     Indication: Nausea
     Dosage: 10 MILLIGRAM
     Route: 048

REACTIONS (3)
  - Renal cancer [Unknown]
  - Injury [Unknown]
  - Pain [Unknown]

NARRATIVE: CASE EVENT DATE: 20181101
